FAERS Safety Report 11654338 (Version 1)
Quarter: 2015Q4

REPORT INFORMATION
  Report Type: Spontaneous
  Country: US (occurrence: US)
  Receive Date: 20151023
  Receipt Date: 20151023
  Transmission Date: 20160304
  Serious: Yes (Other)
  Sender: FDA-Public Use
  Company Number: US-AMGEN-USASP2015110267

PATIENT
  Age: 57 Year
  Sex: Female

DRUGS (1)
  1. ENBREL [Suspect]
     Active Substance: ETANERCEPT
     Indication: RHEUMATOID ARTHRITIS
     Dosage: UNK UNK, QWK
     Route: 065
     Dates: start: 2014

REACTIONS (6)
  - Rheumatoid arthritis [Unknown]
  - Injection site pain [Unknown]
  - Injection site bruising [Unknown]
  - Knee arthroplasty [Unknown]
  - Injection site reaction [Unknown]
  - Injection site nodule [Unknown]

NARRATIVE: CASE EVENT DATE: 2014
